FAERS Safety Report 10067176 (Version 1)
Quarter: 2014Q2

REPORT INFORMATION
  Report Type: Spontaneous
  Country: CA (occurrence: None)
  Receive Date: 20140408
  Receipt Date: 20140408
  Transmission Date: 20141212
  Serious: Yes (Other)
  Sender: FDA-Public Use
  Company Number: None

PATIENT
  Age: 60 Year
  Sex: Female

DRUGS (2)
  1. ALIMTA [Suspect]
     Indication: DYSGEUSIA
     Route: 048
  2. FLUCONAZOLE [Suspect]

REACTIONS (2)
  - Dysgeusia [None]
  - Drug ineffective [None]
